FAERS Safety Report 6117578-2 (Version None)
Quarter: 2009Q1

REPORT INFORMATION
  Report Type: 
  Country: None (occurrence: None)
  Receive Date: 20090314
  Receipt Date: 20090120
  Transmission Date: 20090719
  Serious: No
  Sender: FDA-Public Use
  Company Number: US-ABBOTT-09P-163-0498863-00

PATIENT
  Sex: Female
  Weight: 90.8 kg

DRUGS (4)
  1. HUMIRA [Suspect]
     Indication: RHEUMATOID ARTHRITIS
     Route: 058
     Dates: start: 20040101, end: 20081201
  2. METHOTREXATE [Concomitant]
     Indication: RHEUMATOID ARTHRITIS
     Route: 048
  3. PREDNISONE [Concomitant]
     Indication: RHEUMATOID ARTHRITIS
     Route: 048
  4. FOL-GARD OS [Concomitant]
     Indication: VITAMIN SUPPLEMENTATION
     Route: 048

REACTIONS (1)
  - UPPER RESPIRATORY TRACT INFECTION [None]
